FAERS Safety Report 7250562-4 (Version None)
Quarter: 2011Q1

REPORT INFORMATION
  Report Type: 
  Country: None (occurrence: None)
  Receive Date: 20110128
  Receipt Date: 20110118
  Transmission Date: 20110831
  Serious: Yes (Death)
  Sender: FDA-Public Use
  Company Number: JP-ACTELION-A-CH2010-41207

PATIENT
  Sex: Female
  Weight: 39 kg

DRUGS (16)
  1. WARFARIN POTASSIUM [Concomitant]
  2. ALLOPURINOL [Concomitant]
  3. CARPERITIDE [Concomitant]
  4. HEPARIN SODIUM [Concomitant]
  5. CEFOTIAM HYDROCHLORIDE [Concomitant]
  6. BOSENTAN TABLET 62.5 MG JPN [Suspect]
     Indication: PULMONARY HYPERTENSION
     Dosage: 31.25 MG, QD
     Route: 048
     Dates: start: 20100803, end: 20100816
  7. CILOSTAZOL [Concomitant]
  8. LANSOPRAZOLE [Concomitant]
  9. AMLODIPINE BESYLATE [Concomitant]
  10. MOSAPRIDE CITRATE [Concomitant]
  11. FUROSEMIDE [Concomitant]
  12. METOCLOPRAMIDE HYDROCHLORIDE [Concomitant]
  13. FERROUS SODIUM CITRATE [Concomitant]
  14. CLINDAMYCIN PHOSPHATE [Concomitant]
  15. BOSENTAN TABLET 62.5 MG JPN [Suspect]
     Dosage: 62.5 MG, QD
     Route: 048
     Dates: start: 20100604, end: 20100802
  16. PANTETHINE [Concomitant]

REACTIONS (6)
  - GAMMA-GLUTAMYLTRANSFERASE INCREASED [None]
  - CARDIO-RESPIRATORY ARREST [None]
  - HEPATIC FUNCTION ABNORMAL [None]
  - ASPARTATE AMINOTRANSFERASE INCREASED [None]
  - DEATH [None]
  - ALANINE AMINOTRANSFERASE INCREASED [None]
